FAERS Safety Report 14963630 (Version 3)
Quarter: 2018Q2

REPORT INFORMATION
  Report Type: Report from Study
  Country: US (occurrence: US)
  Receive Date: 20180601
  Receipt Date: 20180620
  Transmission Date: 20180711
  Serious: Yes (Other)
  Sender: FDA-Public Use
  Company Number: US-JAZZ-2018-US-008463

PATIENT
  Sex: Female

DRUGS (25)
  1. XYREM [Suspect]
     Active Substance: SODIUM OXYBATE
     Dosage: 1 G, QD
     Route: 048
     Dates: start: 20180524
  2. CYMBALTA [Concomitant]
     Active Substance: DULOXETINE HYDROCHLORIDE
  3. XYREM [Suspect]
     Active Substance: SODIUM OXYBATE
     Dosage: 1 G, BID
     Route: 048
     Dates: start: 201805
  4. LIPITOR [Concomitant]
     Active Substance: ATORVASTATIN CALCIUM
  5. TRAMADOL HCL [Concomitant]
     Active Substance: TRAMADOL HYDROCHLORIDE
  6. PROPRANOLOL [Concomitant]
     Active Substance: PROPRANOLOL HYDROCHLORIDE
  7. BASAGLAR [Concomitant]
     Active Substance: INSULIN GLARGINE
  8. XYREM [Suspect]
     Active Substance: SODIUM OXYBATE
     Indication: FIBROMYALGIA
     Dosage: 3 G, BID
     Route: 048
     Dates: start: 201203, end: 201204
  9. METFORMIN HCL [Concomitant]
     Active Substance: METFORMIN HYDROCHLORIDE
  10. NALTREXONE [Concomitant]
     Active Substance: NALTREXONE
  11. RAMIPRIL. [Concomitant]
     Active Substance: RAMIPRIL
  12. PANTOPRAZOLE SODIUM. [Concomitant]
     Active Substance: PANTOPRAZOLE SODIUM
  13. XYREM [Suspect]
     Active Substance: SODIUM OXYBATE
     Dosage: 4.5 G, BID
     Route: 048
     Dates: start: 201204, end: 201312
  14. ARIPIPRAZOLE. [Concomitant]
     Active Substance: ARIPIPRAZOLE
  15. MEFENAMIC ACID. [Concomitant]
     Active Substance: MEFENAMIC ACID
  16. GABAPENTIN. [Concomitant]
     Active Substance: GABAPENTIN
  17. LANTUS [Concomitant]
     Active Substance: INSULIN GLARGINE
  18. XYREM [Suspect]
     Active Substance: SODIUM OXYBATE
     Dosage: 4 G, SECOND DOSE
     Route: 048
  19. DULOXETINE HCL [Concomitant]
     Active Substance: DULOXETINE HYDROCHLORIDE
  20. HUMALOG [Concomitant]
     Active Substance: INSULIN LISPRO
  21. LISINOPRIL. [Concomitant]
     Active Substance: LISINOPRIL
  22. DICLOFENAC [Concomitant]
     Active Substance: DICLOFENAC
  23. XYREM [Suspect]
     Active Substance: SODIUM OXYBATE
     Dosage: 4 G, FIRST DOSE
     Route: 048
  24. AMBIEN [Suspect]
     Active Substance: ZOLPIDEM TARTRATE
     Indication: PRODUCT USED FOR UNKNOWN INDICATION
     Dosage: UNKNOWN DOSE
     Dates: end: 201805
  25. LINZESS [Concomitant]
     Active Substance: LINACLOTIDE

REACTIONS (11)
  - Somnolence [Not Recovered/Not Resolved]
  - Oropharyngeal pain [Unknown]
  - Pain [Not Recovered/Not Resolved]
  - Otitis externa [Unknown]
  - Blood pressure increased [Not Recovered/Not Resolved]
  - Condition aggravated [Not Recovered/Not Resolved]
  - Rhinitis [Unknown]
  - Hypersensitivity [Unknown]
  - Otitis media acute [Unknown]
  - Drug ineffective [Unknown]
  - Insomnia [Unknown]
